FAERS Safety Report 5614341-3 (Version None)
Quarter: 2008Q1

REPORT INFORMATION
  Report Type: 
  Country: None (occurrence: None)
  Receive Date: 20080111
  Receipt Date: 20061117
  Transmission Date: 20080703
  Serious: Yes (Hospitalization, Other)
  Sender: FDA-Public Use
  Company Number: HQWYE618105OCT06

PATIENT
  Age: 58 Year
  Sex: Female

DRUGS (1)
  1. PREMPRO [Suspect]
     Dosage: 0.3/1.5, ORAL
     Route: 048
     Dates: start: 20060801

REACTIONS (1)
  - BREAST CANCER [None]
